FAERS Safety Report 24767596 (Version 1)
Quarter: 2024Q4

REPORT INFORMATION
  Report Type: Spontaneous
  Country: US (occurrence: None)
  Receive Date: 20241221
  Receipt Date: 20241221
  Transmission Date: 20250115
  Serious: Yes (Hospitalization)
  Sender: Public
  Company Number: None

PATIENT
  Age: 58 Year
  Sex: Female
  Weight: 60.75 kg

DRUGS (2)
  1. SEMAGLUTIDE [Suspect]
     Active Substance: SEMAGLUTIDE
     Dosage: WEEKLY SUBCUTANEOUS
     Route: 058
     Dates: start: 20241115, end: 20241215
  2. SEMAGLUTIDE [Concomitant]
     Active Substance: SEMAGLUTIDE
     Dates: start: 20241115, end: 20241215

REACTIONS (2)
  - Contraindicated product administered [None]
  - Adverse drug reaction [None]

NARRATIVE: CASE EVENT DATE: 20241217
